FAERS Safety Report 5094070-8 (Version None)
Quarter: 2006Q3

REPORT INFORMATION
  Report Type: 
  Country: None (occurrence: None)
  Receive Date: 20060829
  Receipt Date: 20060829
  Transmission Date: 20061208
  Serious: Yes (Hospitalization)
  Sender: FDA-Public Use
  Company Number: None

PATIENT
  Age: 31 Year
  Sex: Female

DRUGS (3)
  1. PPD TST 5TU [Suspect]
     Dosage: ID/LFA
     Route: 023
     Dates: start: 20060815
  2. SYNTHROID [Concomitant]
  3. DESOGEN [Concomitant]

REACTIONS (3)
  - BODY TEMPERATURE INCREASED [None]
  - INJECTION SITE SWELLING [None]
  - OEDEMA [None]
